FAERS Safety Report 16270088 (Version 1)
Quarter: 2020Q3

REPORT INFORMATION
  Report Type: Report from Study
  Country: FR (occurrence: FR)
  Receive Date: 20190503
  Receipt Date: 20190503
  Transmission Date: 20201104
  Serious: Yes (Hospitalization)
  Sender: FDA-Public Use
  Company Number: FR-JNJFOC-20190133546

PATIENT
  Age: 48 Year
  Sex: Female
  Weight: 53 kg

DRUGS (18)
  1. LORAZEPAM. [Concomitant]
     Active Substance: LORAZEPAM
     Indication: ANXIETY
     Route: 048
     Dates: start: 20181115
  2. DULOXETINE. [Concomitant]
     Active Substance: DULOXETINE
     Indication: MAJOR DEPRESSION
     Route: 048
     Dates: start: 20181115
  3. OLANZAPINE. [Concomitant]
     Active Substance: OLANZAPINE
     Indication: MAJOR DEPRESSION
     Route: 048
     Dates: start: 20181113, end: 20181114
  4. OLANZAPINE. [Concomitant]
     Active Substance: OLANZAPINE
     Indication: MAJOR DEPRESSION
     Route: 048
     Dates: start: 20181115, end: 20181225
  5. DULOXETINE. [Concomitant]
     Active Substance: DULOXETINE
     Indication: SUICIDAL IDEATION
     Route: 048
     Dates: start: 20181107, end: 20181114
  6. OLANZAPINE. [Concomitant]
     Active Substance: OLANZAPINE
     Indication: SUICIDAL IDEATION
     Route: 048
     Dates: start: 20181113, end: 20181114
  7. ESKETAMINE [Suspect]
     Active Substance: ESKETAMINE
     Indication: SUICIDAL IDEATION
     Route: 045
  8. DULOXETINE. [Concomitant]
     Active Substance: DULOXETINE
     Indication: SUICIDAL IDEATION
     Route: 048
     Dates: start: 20181115
  9. OLANZAPINE. [Concomitant]
     Active Substance: OLANZAPINE
     Indication: SUICIDAL IDEATION
     Route: 048
     Dates: start: 20181115, end: 20181225
  10. OLANZAPINE. [Concomitant]
     Active Substance: OLANZAPINE
     Indication: MAJOR DEPRESSION
     Route: 048
     Dates: start: 20181226, end: 20190122
  11. OLANZAPINE. [Concomitant]
     Active Substance: OLANZAPINE
     Indication: SUICIDAL IDEATION
     Route: 048
     Dates: start: 20190123
  12. L THYROXINE [Concomitant]
     Active Substance: LEVOTHYROXINE SODIUM
     Indication: HYPOTHYROIDISM
     Route: 048
     Dates: start: 1988, end: 20181120
  13. L THYROXINE [Concomitant]
     Active Substance: LEVOTHYROXINE SODIUM
     Indication: HYPOTHYROIDISM
     Route: 048
     Dates: start: 20181121
  14. OLANZAPINE. [Concomitant]
     Active Substance: OLANZAPINE
     Indication: SUICIDAL IDEATION
     Route: 048
     Dates: start: 20181226, end: 20190122
  15. OLANZAPINE. [Concomitant]
     Active Substance: OLANZAPINE
     Indication: MAJOR DEPRESSION
     Route: 048
     Dates: start: 20190123
  16. DULOXETINE. [Concomitant]
     Active Substance: DULOXETINE
     Indication: MAJOR DEPRESSION
     Route: 048
     Dates: start: 20181107, end: 20181114
  17. METHOTREXATE. [Concomitant]
     Active Substance: METHOTREXATE
     Indication: RHEUMATOID ARTHRITIS
     Route: 048
     Dates: start: 20181109
  18. ESKETAMINE [Suspect]
     Active Substance: ESKETAMINE
     Indication: MAJOR DEPRESSION
     Route: 045

REACTIONS (1)
  - Acute stress disorder [Not Recovered/Not Resolved]

NARRATIVE: CASE EVENT DATE: 20190123
